FAERS Safety Report 26150931 (Version 2)
Quarter: 2025Q4

REPORT INFORMATION
  Report Type: Other
  Country: JP (occurrence: JP)
  Receive Date: 20251212
  Receipt Date: 20251225
  Transmission Date: 20260117
  Serious: Yes (Death, Other)
  Sender: ANI
  Company Number: JP-ANIPHARMA-035533

PATIENT
  Age: 66 Year
  Sex: Female

DRUGS (5)
  1. ANASTROZOLE [Suspect]
     Active Substance: ANASTROZOLE
     Indication: Breast cancer stage III
  2. NOLVADEX [Concomitant]
     Active Substance: TAMOXIFEN CITRATE
     Indication: Breast cancer stage III
  3. FASLODEX [Concomitant]
     Active Substance: FULVESTRANT
     Indication: Breast cancer stage III
  4. ERIBULIN MESYLATE [Concomitant]
     Active Substance: ERIBULIN MESYLATE
     Indication: Breast cancer stage III
     Dosage: INJECTION
  5. DEVICE [Concomitant]
     Active Substance: DEVICE
     Indication: Breast cancer stage III

REACTIONS (4)
  - Myelosuppression [Unknown]
  - Pseudocirrhosis [Fatal]
  - Metastases to liver [Unknown]
  - Metastases to bone [Unknown]
